FAERS Safety Report 5050005-5 (Version None)
Quarter: 2006Q2

REPORT INFORMATION
  Report Type: 
  Country: None (occurrence: None)
  Receive Date: 20060614
  Receipt Date: 20060228
  Transmission Date: 20061013
  Serious: Yes (Other)
  Sender: FDA-Public Use
  Company Number: 438561

PATIENT
  Age: 72 Year
  Sex: Female

DRUGS (2)
  1. BONIVA [Suspect]
     Indication: OSTEOPOROSIS
     Dosage: 1 PER MONTH ORAL
     Route: 048
     Dates: start: 20060115, end: 20060220
  2. BLOOD PRESSURE MEDICATION NOS (ANTIHYPERTENSIVE NOS) [Concomitant]

REACTIONS (2)
  - BLOOD PRESSURE INCREASED [None]
  - PAIN IN EXTREMITY [None]
